FAERS Safety Report 6761782-7 (Version None)
Quarter: 2010Q2

REPORT INFORMATION
  Report Type: 
  Country: None (occurrence: None)
  Receive Date: 20100420
  Receipt Date: 20100407
  Transmission Date: 20101027
  Serious: No
  Sender: FDA-Public Use
  Company Number: CA-144953

PATIENT
  Sex: Female
  Weight: 91.7 kg

DRUGS (3)
  1. WINRHO SDF [Suspect]
     Indication: AUTOIMMUNE THROMBOCYTOPENIA
     Dosage: 54.53 UG/KG TOTAL
     Dates: start: 20090928, end: 20090928
  2. IMMUNE GLOBULIN NOS [Concomitant]
  3. RITUXIMAB [Concomitant]

REACTIONS (2)
  - DOCUMENTED HYPERSENSITIVITY TO ADMINISTERED DRUG [None]
  - HAEMOLYSIS [None]
